FAERS Safety Report 4708385-3 (Version None)
Quarter: 2005Q3

REPORT INFORMATION
  Report Type: 
  Country: None (occurrence: None)
  Receive Date: 20050706
  Receipt Date: 20050621
  Transmission Date: 20060218
  Serious: Yes (Hospitalization)
  Sender: FDA-Public Use
  Company Number: 2005PV000078

PATIENT
  Age: 53 Year
  Sex: Female
  Weight: 107.9561 kg

DRUGS (16)
  1. BYETTA [Suspect]
     Indication: DIABETES MELLITUS NON-INSULIN-DEPENDENT
     Dosage: 5 UG; BID; SC
     Route: 058
     Dates: start: 20050613, end: 20050618
  2. GLUCOPHAGE [Concomitant]
  3. GLUCOVANCE [Concomitant]
  4. DIOVAN HCT [Concomitant]
  5. LIPITOR [Concomitant]
  6. LOPID [Concomitant]
  7. LASIX [Concomitant]
  8. POTASSIUM CHLORIDE [Concomitant]
  9. PROTONIX [Concomitant]
  10. PRAZOSIN [Concomitant]
  11. SINGULAIR [Concomitant]
  12. PAXIL [Concomitant]
  13. INSULIN RAPID [Concomitant]
  14. INSULIN NOVO [Concomitant]
  15. ACTOS [Concomitant]
  16. GLYPERIDE [Concomitant]

REACTIONS (3)
  - HYPOGLYCAEMIA [None]
  - ILEUS [None]
  - ORAL INTAKE REDUCED [None]
